FAERS Safety Report 14188006 (Version 3)
Quarter: 2017Q4

REPORT INFORMATION
  Report Type: Spontaneous
  Country: DE (occurrence: DE)
  Receive Date: 20171114
  Receipt Date: 20171222
  Transmission Date: 20180321
  Serious: Yes (Disabling)
  Sender: FDA-Public Use
  Company Number: DE-SA-2017SA173614

PATIENT
  Age: 71 Year
  Sex: Male
  Weight: 83 kg

DRUGS (9)
  1. CARMEN [Concomitant]
     Active Substance: LERCANIDIPINE
     Route: 065
  2. RAMIPRIL. [Concomitant]
     Active Substance: RAMIPRIL
     Dosage: STRENGTH: 5 MG
     Route: 065
  3. PRALUENT [Suspect]
     Active Substance: ALIROCUMAB
     Indication: HYPERCHOLESTEROLAEMIA
     Route: 058
     Dates: start: 201705, end: 201708
  4. ATORVASTATIN [Concomitant]
     Active Substance: ATORVASTATIN
     Route: 065
     Dates: end: 2017
  5. RANEXA [Concomitant]
     Active Substance: RANOLAZINE
     Dosage: STRENGTH:759 MG
     Route: 065
  6. EZETROL [Concomitant]
     Active Substance: EZETIMIBE
     Dosage: STRENGTH: 10 MG
     Route: 065
  7. SPIRO COMP. [Concomitant]
     Route: 065
  8. ALIROCUMAB PREFILLED PEN [Suspect]
     Active Substance: ALIROCUMAB
     Indication: HYPERCHOLESTEROLAEMIA
     Dates: start: 201705, end: 201708
  9. METOPROLOL. [Concomitant]
     Active Substance: METOPROLOL
     Dosage: STRENGTH: 100 MG
     Route: 065

REACTIONS (6)
  - Blood pressure decreased [Recovering/Resolving]
  - Dysphagia [Recovering/Resolving]
  - Hypokinesia [Recovering/Resolving]
  - Muscular weakness [Recovering/Resolving]
  - Fatigue [Recovering/Resolving]
  - Personality change [Not Recovered/Not Resolved]

NARRATIVE: CASE EVENT DATE: 201709
